FAERS Safety Report 24254313 (Version 1)
Quarter: 2024Q3

REPORT INFORMATION
  Report Type: Report from Study
  Country: IN (occurrence: IN)
  Receive Date: 20240827
  Receipt Date: 20240827
  Transmission Date: 20241016
  Serious: Yes (Other)
  Sender: CIPLA
  Company Number: IN-CIPLA LTD.-2024IN07805

PATIENT

DRUGS (1)
  1. MIDAZOLAM [Suspect]
     Active Substance: MIDAZOLAM
     Indication: Sedation
     Dosage: 0.3 MG/KG USING MUCOSAL ATOMIZATION DEVICE
     Route: 045

REACTIONS (4)
  - Respiratory distress [Unknown]
  - Sneezing [Unknown]
  - Cough [Unknown]
  - Sedation complication [Unknown]
